FAERS Safety Report 14132698 (Version 3)
Quarter: 2018Q1

REPORT INFORMATION
  Report Type: Spontaneous
  Country: JP (occurrence: JP)
  Receive Date: 20171027
  Receipt Date: 20180131
  Transmission Date: 20180508
  Serious: Yes (Other)
  Sender: FDA-Public Use
  Company Number: JP-ROCHE-2014905

PATIENT
  Age: 90 Year
  Sex: Male

DRUGS (10)
  1. VISUDYNE [Suspect]
     Active Substance: VERTEPORFIN
     Dosage: 15 MG, UNK
     Route: 042
     Dates: start: 20170622
  2. LUCENTIS [Suspect]
     Active Substance: RANIBIZUMAB
     Indication: POLYPOIDAL CHOROIDAL VASCULOPATHY
     Dosage: UNK (IN THE RIGHT EYE )
     Route: 031
     Dates: start: 20131212
  3. LUCENTIS [Suspect]
     Active Substance: RANIBIZUMAB
     Dosage: UNK (IN THE RIGHT EYE )
     Route: 031
     Dates: start: 20170620
  4. LUCENTIS [Suspect]
     Active Substance: RANIBIZUMAB
     Dosage: 0.05 MG, UNK
     Route: 031
     Dates: start: 20170718, end: 20170718
  5. VISUDYNE [Suspect]
     Active Substance: VERTEPORFIN
     Dosage: UNK (3 TIMES IN THE LEFT EYE)
     Route: 042
  6. LUCENTIS [Suspect]
     Active Substance: RANIBIZUMAB
     Dosage: UNK (IN THE RIGHT EYE )
     Route: 031
     Dates: start: 20140116
  7. LUCENTIS [Suspect]
     Active Substance: RANIBIZUMAB
     Dosage: UNK (IN THE RIGHT EYE )
     Route: 031
     Dates: start: 20140220
  8. LUCENTIS [Suspect]
     Active Substance: RANIBIZUMAB
     Route: 031
     Dates: start: 20170815
  9. LUCENTIS [Suspect]
     Active Substance: RANIBIZUMAB
     Dosage: UNK (3 TIMES IN THE LEFT EYE)
     Route: 031
  10. VISUDYNE [Suspect]
     Active Substance: VERTEPORFIN
     Indication: POLYPOIDAL CHOROIDAL VASCULOPATHY
     Dosage: UNK (IN THE RIGHT EYE )
     Route: 042
     Dates: start: 20131219

REACTIONS (4)
  - Concomitant disease aggravated [Unknown]
  - Polypoidal choroidal vasculopathy [Unknown]
  - Disease progression [Unknown]
  - Myopia [Unknown]
